FAERS Safety Report 6115362 (Version 2)
Quarter: 2013Q3

REPORT INFORMATION
  Report Type: Spontaneous
  Country: US (occurrence: US)
  Receive Date: 20060825
  Receipt Date: 20130924
  Transmission Date: 20140515
  Serious: Yes (Hospitalization)
  Sender: FDA-Public Use
  Company Number: US-BAYER-200611268BWH

PATIENT
  Age: 43 Year
  Sex: Female
  Weight: 53.64 kg

DRUGS (5)
  1. AVELOX [Suspect]
     Indication: UPPER RESPIRATORY TRACT INFECTION
     Route: 048
     Dates: start: 20051213, end: 20051213
  2. AVELOX [Suspect]
     Indication: UPPER RESPIRATORY TRACT INFECTION
     Dosage: 400 MG, ONCE
     Route: 048
     Dates: start: 20060227, end: 20060227
  3. PLAQUENIL [Concomitant]
     Indication: THERAPEUTIC PROCEDURE
  4. PREDNISONE [Concomitant]
     Indication: THERAPEUTIC PROCEDURE
  5. MULTIVITAMINS [Concomitant]

REACTIONS (12)
  - Streptococcal bacteraemia [Unknown]
  - Myalgia [Unknown]
  - Body temperature increased [Unknown]
  - Muscle spasms [Recovered/Resolved]
  - Myalgia [Recovered/Resolved]
  - Myalgia [Recovered/Resolved]
  - Neuropathy peripheral [Not Recovered/Not Resolved]
  - Hypoaesthesia [Not Recovered/Not Resolved]
  - Hypoaesthesia [Not Recovered/Not Resolved]
  - Hypoaesthesia [Not Recovered/Not Resolved]
  - Pain in extremity [Not Recovered/Not Resolved]
  - Drug hypersensitivity [Not Recovered/Not Resolved]
